FAERS Safety Report 16483253 (Version 1)
Quarter: 2019Q2

REPORT INFORMATION
  Report Type: Spontaneous
  Country: CH (occurrence: CH)
  Receive Date: 20190627
  Receipt Date: 20190627
  Transmission Date: 20190711
  Serious: Yes (Death, Life-Threatening, Hospitalization)
  Sender: FDA-Public Use
  Company Number: CH-PFIZER INC-2019272504

PATIENT
  Age: 78 Year
  Sex: Male

DRUGS (10)
  1. BACTRIM [Concomitant]
     Active Substance: SULFAMETHOXAZOLE\TRIMETHOPRIM
     Dosage: 800/160 MG, 1X/DAY
     Dates: start: 20190607
  2. EMEND [Concomitant]
     Active Substance: APREPITANT
     Dosage: 125 MG, DAILY
     Route: 048
     Dates: start: 20190607
  3. FORTECORTIN [DEXAMETHASONE] [Concomitant]
     Active Substance: DEXAMETHASONE
     Dosage: UNK
  4. DOXORUBICIN [Concomitant]
     Active Substance: DOXORUBICIN
     Dosage: 45 MG, SINGLE
     Route: 042
     Dates: start: 20190607, end: 20190607
  5. NEXIUM [Concomitant]
     Active Substance: ESOMEPRAZOLE MAGNESIUM
     Dosage: UNK
  6. DIFLUCAN [Suspect]
     Active Substance: FLUCONAZOLE
     Indication: ANTIFUNGAL PROPHYLAXIS
     Dosage: 400 MG (2X200MG), WEEKLY
     Dates: start: 20190607
  7. VALTREX [Concomitant]
     Active Substance: VALACYCLOVIR HYDROCHLORIDE
     Dosage: 500 MG, 2X/DAY
     Dates: start: 20190607
  8. VELBE [Suspect]
     Active Substance: VINBLASTINE SULFATE
     Indication: HODGKIN^S DISEASE
     Dosage: 11 MG, SINGLE DOSE
     Dates: start: 20190607, end: 20190607
  9. DACARBAZINE. [Concomitant]
     Active Substance: DACARBAZINE
     Dosage: 725 MG, SINGLE
     Route: 042
     Dates: start: 20190607, end: 20190607
  10. EMEND [Concomitant]
     Active Substance: APREPITANT
     Dosage: 80 MG, DAILY
     Route: 048
     Dates: start: 20190608, end: 20190609

REACTIONS (1)
  - Hyperbilirubinaemia [Fatal]

NARRATIVE: CASE EVENT DATE: 20190610
